FAERS Safety Report 8024388-8 (Version None)
Quarter: 2012Q1

REPORT INFORMATION
  Report Type: 
  Country: None (occurrence: None)
  Receive Date: 20120105
  Receipt Date: 20120105
  Transmission Date: 20120608
  Serious: No
  Sender: FDA-Public Use
  Company Number: None

PATIENT
  Sex: Male

DRUGS (1)
  1. CHLORAPREP ONE-STEP [Suspect]
     Indication: INFECTION PROPHYLAXIS

REACTIONS (4)
  - PRODUCT CONTAMINATION PHYSICAL [None]
  - SCRATCH [None]
  - APPLICATION SITE REACTION [None]
  - APPLICATION SITE BLEEDING [None]
